FAERS Safety Report 20988258 (Version 1)
Quarter: 2022Q2

REPORT INFORMATION
  Report Type: Other
  Country: GB (occurrence: GB)
  Receive Date: 20220621
  Receipt Date: 20220621
  Transmission Date: 20220721
  Serious: No
  Sender: FDA-Public Use
  Company Number: GB-SUN PHARMACEUTICAL INDUSTRIES LTD-2022RR-339393

PATIENT
  Sex: Female

DRUGS (2)
  1. SERTRALINE [Suspect]
     Active Substance: SERTRALINE HYDROCHLORIDE
     Indication: Product used for unknown indication
     Dosage: 3 DOSAGE FORM,(2 IN THE AFTERNOON, 1 IN THE EVENING)
     Route: 065
  2. DOXYCYCLINE [Suspect]
     Active Substance: DOXYCYCLINE
     Indication: Product used for unknown indication
     Dosage: 3 DOSAGE FORM (2 IN THE AFTERNOON, 1 IN THE EVENING )
     Route: 065

REACTIONS (6)
  - Drug dispensed to wrong patient [Unknown]
  - Wrong patient received product [Unknown]
  - Insomnia [Unknown]
  - Panic reaction [Unknown]
  - Feeling abnormal [Unknown]
  - Dizziness [Unknown]
